FAERS Safety Report 5152919-4 (Version None)
Quarter: 2006Q4

REPORT INFORMATION
  Report Type: 
  Country: None (occurrence: None)
  Receive Date: 20061117
  Receipt Date: 20060920
  Transmission Date: 20070319
  Serious: Yes (Hospitalization, Other)
  Sender: FDA-Public Use
  Company Number: PHEH2006US11982

PATIENT
  Age: 81 Year
  Sex: Female

DRUGS (6)
  1. KLONOPIN [Concomitant]
     Indication: ANXIETY
     Dosage: 0.5 MG, TID
     Route: 048
  2. CLOZARIL [Suspect]
     Indication: BIPOLAR DISORDER
     Dosage: 25 MG, QD
     Route: 048
     Dates: start: 19960101, end: 20060901
  3. CLOZARIL [Suspect]
     Route: 048
     Dates: start: 20061001
  4. HALOPERIDOL TABLETS USP (NGX) [Suspect]
     Dosage: UNK, UNK
     Dates: end: 20060901
  5. LITHIUM CARBONATE [Suspect]
     Indication: BIPOLAR DISORDER
     Dosage: 300 MG, QD
     Route: 048
  6. CELEXA [Concomitant]
     Indication: DEPRESSION
     Dosage: 60 MG, QD
     Route: 048

REACTIONS (9)
  - ANTIPSYCHOTIC DRUG LEVEL INCREASED [None]
  - APHASIA [None]
  - CATATONIA [None]
  - DEPRESSED LEVEL OF CONSCIOUSNESS [None]
  - DEPRESSION [None]
  - DISORIENTATION [None]
  - DYSPNOEA [None]
  - ORAL INTAKE REDUCED [None]
  - WHITE BLOOD CELL COUNT DECREASED [None]
